FAERS Safety Report 8404834 (Version 3)
Quarter: 2012Q4

REPORT INFORMATION
  Report Type: Report from Study
  Country: JP (occurrence: JP)
  Receive Date: 20120214
  Receipt Date: 20121227
  Transmission Date: 20130627
  Serious: Yes (Death, Hospitalization, Other)
  Sender: FDA-Public Use
  Company Number: JP-BAXTER-2012BH003817

PATIENT
  Age: 72 Year
  Sex: Male
  Weight: 70 kg

DRUGS (11)
  1. CYCLOPHOSPHAMIDE FOR INJECTION, USP [Suspect]
     Indication: NON-SMALL CELL LUNG CANCER STAGE III
     Route: 042
     Dates: start: 20111115, end: 20111115
  2. STUDY DRUG [Suspect]
     Indication: NON-SMALL CELL LUNG CANCER STAGE III
     Route: 058
     Dates: start: 20111128, end: 20120105
  3. LOXONIN [Concomitant]
     Indication: CANCER PAIN
     Route: 048
     Dates: start: 20111102
  4. MUCOSTA [Concomitant]
     Indication: GASTRIC ULCER PROPHYLAXIS
     Route: 048
     Dates: start: 20111102
  5. PREDNISOLONE [Concomitant]
     Indication: RADIATION PNEUMONITIS
     Route: 048
     Dates: start: 20111216
  6. CODEINE [Concomitant]
     Indication: COUGH
     Route: 048
     Dates: start: 20120110
  7. SOLU-MEDROL [Concomitant]
     Indication: RADIATION PNEUMONITIS
     Route: 042
     Dates: start: 20120110, end: 20120110
  8. MYSLEE [Concomitant]
     Indication: INSOMNIA
     Route: 048
     Dates: start: 20110105
  9. METOCLOPRAMIDE HYDROCHLORIDE [Concomitant]
     Indication: PROPHYLAXIS
     Route: 042
     Dates: start: 20111115, end: 20111115
  10. AZASETRON HYDROCHLORIDE [Concomitant]
     Indication: PROPHYLAXIS
     Route: 042
     Dates: start: 20111115, end: 20111115
  11. GARENOXACIN [Concomitant]
     Indication: RADIATION PNEUMONITIS
     Route: 048
     Dates: start: 20111215, end: 20111216

REACTIONS (3)
  - Optic ischaemic neuropathy [Not Recovered/Not Resolved]
  - Radiation pneumonitis [Unknown]
  - Disease progression [Fatal]
